FAERS Safety Report 5099264-3 (Version None)
Quarter: 2006Q3

REPORT INFORMATION
  Report Type: 
  Country: None (occurrence: None)
  Receive Date: 20060731
  Receipt Date: 20060227
  Transmission Date: 20061208
  Serious: Yes (Other)
  Sender: FDA-Public Use
  Company Number: US-2006-007731

PATIENT
  Age: 58 Year
  Sex: Female
  Weight: 99.3 kg

DRUGS (2)
  1. MAGNEVIST [Suspect]
     Indication: NERVOUS SYSTEM DISORDER
     Dosage: 20 M., 1 DOSE, INTRAVENOUS
     Route: 042
     Dates: start: 20060219, end: 20060219
  2. MAGNEVIST [Suspect]
     Indication: VENOGRAM
     Dosage: 20 M., 1 DOSE, INTRAVENOUS
     Route: 042
     Dates: start: 20060219, end: 20060219

REACTIONS (4)
  - AGITATION [None]
  - CONVULSION [None]
  - FEELING HOT [None]
  - HYPOAESTHESIA FACIAL [None]
